FAERS Safety Report 19737496 (Version 1)
Quarter: 2021Q3

REPORT INFORMATION
  Report Type: Spontaneous
  Country: US (occurrence: US)
  Receive Date: 20210824
  Receipt Date: 20210824
  Transmission Date: 20211014
  Serious: Yes (Hospitalization, Other)
  Sender: FDA-Public Use
  Company Number: US-009507513-2108USA005367

PATIENT
  Sex: Female

DRUGS (3)
  1. SOTORASIB. [Suspect]
     Active Substance: SOTORASIB
     Indication: NON-SMALL CELL LUNG CANCER
     Dosage: UNK
     Dates: end: 20210723
  2. SOTORASIB. [Suspect]
     Active Substance: SOTORASIB
     Indication: K-RAS GENE MUTATION
  3. KEYTRUDA [Suspect]
     Active Substance: PEMBROLIZUMAB
     Indication: PRODUCT USED FOR UNKNOWN INDICATION
     Dosage: UNKNOWN

REACTIONS (5)
  - Diarrhoea [Unknown]
  - Abdominal discomfort [Unknown]
  - Tumour pain [Unknown]
  - Colitis [Unknown]
  - Pyrexia [Unknown]
